FAERS Safety Report 17013621 (Version 1)
Quarter: 2019Q4

REPORT INFORMATION
  Report Type: Report from Study
  Country: CA (occurrence: CA)
  Receive Date: 20191110
  Receipt Date: 20191110
  Transmission Date: 20200122
  Serious: No
  Sender: FDA-Public Use
  Company Number: CA-BEH-2019108944

PATIENT
  Age: 51 Year
  Sex: Female

DRUGS (2)
  1. HIZENTRA [Suspect]
     Active Substance: HUMAN IMMUNOGLOBULIN G
     Indication: MYASTHENIA GRAVIS
     Dosage: 50 GRAM, QW
     Route: 058
     Dates: start: 20190816
  2. CORTISONE [Concomitant]
     Active Substance: CORTISONE

REACTIONS (5)
  - Product use in unapproved indication [Unknown]
  - No adverse event [Unknown]
  - Drug effective for unapproved indication [Unknown]
  - Injection site discomfort [Unknown]
  - Injection site swelling [Unknown]

NARRATIVE: CASE EVENT DATE: 201910
